FAERS Safety Report 24286896 (Version 1)
Quarter: 2024Q3

REPORT INFORMATION
  Report Type: Spontaneous
  Country: US (occurrence: None)
  Receive Date: 20240903
  Receipt Date: 20240903
  Transmission Date: 20241016
  Serious: No
  Sender: Public
  Company Number: None

PATIENT
  Age: 22 Year
  Sex: Female

DRUGS (1)
  1. RINVOQ [Suspect]
     Active Substance: UPADACITINIB
     Indication: Colitis ulcerative
     Dosage: OTHER FREQUENCY : DAILYFOR8WEEKSASDIR;?ITAKE 1 TABLET BY MOUTH DAILY FOR 8 WEEKS AS D!RECTED.II?
     Dates: start: 202405

REACTIONS (2)
  - Appendicitis [None]
  - Intentional dose omission [None]
